FAERS Safety Report 6452808-9 (Version None)
Quarter: 2009Q4

REPORT INFORMATION
  Report Type: 
  Country: None (occurrence: None)
  Receive Date: 20091124
  Receipt Date: 20091021
  Transmission Date: 20100525
  Serious: Yes (Death, Disabling, Other)
  Sender: FDA-Public Use
  Company Number: US-PFIZER INC-2009184744

PATIENT
  Sex: Male
  Weight: 100 kg

DRUGS (7)
  1. LIPITOR [Suspect]
     Indication: BLOOD CHOLESTEROL INCREASED
     Dosage: 60 MG, 1X/DAY
     Dates: start: 19900101
  2. DILTIAZEM [Concomitant]
     Dosage: 60 MG, 3X/DAY
  3. METFORMIN [Concomitant]
     Dosage: 500 MG, 2X/DAY
  4. NEXIUM [Concomitant]
     Dosage: 40 MG, 1X/DAY
  5. ZESTRIL [Concomitant]
     Dosage: 5 MG, 1X/DAY
  6. GLIPIZIDE [Concomitant]
     Dosage: 5 MG, 2X/DAY
  7. GALANTAMINE HYDROBROMIDE [Concomitant]
     Dosage: 8 MG, 1X/DAY

REACTIONS (6)
  - ACTIVITIES OF DAILY LIVING IMPAIRED [None]
  - CARDIOVERSION [None]
  - DEATH [None]
  - DEMENTIA ALZHEIMER'S TYPE [None]
  - RIB FRACTURE [None]
  - TRAUMATIC LUNG INJURY [None]
